FAERS Safety Report 5148662-8 (Version None)
Quarter: 2006Q4

REPORT INFORMATION
  Report Type: 
  Country: None (occurrence: None)
  Receive Date: 20061107
  Receipt Date: 20061027
  Transmission Date: 20070319
  Serious: Yes (Other)
  Sender: FDA-Public Use
  Company Number: 2006131512

PATIENT
  Age: 24 Year
  Sex: Female
  Weight: 62.5964 kg

DRUGS (1)
  1. PURELL ORIGINAL (ETHYL ALCOHOL) [Suspect]
     Indication: ANTIBIOTIC PROPHYLAXIS
     Dosage: QUARTER SIZE ONCE, TOPICAL
     Route: 061
     Dates: start: 20061012, end: 20061012

REACTIONS (7)
  - BLISTER [None]
  - ERYTHEMA [None]
  - FUNGAL INFECTION [None]
  - INSOMNIA [None]
  - OEDEMA PERIPHERAL [None]
  - ONYCHOMADESIS [None]
  - PAIN IN EXTREMITY [None]
